FAERS Safety Report 20153184 (Version 1)
Quarter: 2021Q4

REPORT INFORMATION
  Report Type: Spontaneous
  Country: PL (occurrence: PL)
  Receive Date: 20211206
  Receipt Date: 20211206
  Transmission Date: 20220303
  Serious: Yes (Other)
  Sender: FDA-Public Use
  Company Number: PL-ANIPHARMA-2021-PL-000083

PATIENT
  Age: 75 Year
  Sex: Male

DRUGS (4)
  1. BICALUTAMIDE [Suspect]
     Active Substance: BICALUTAMIDE
     Indication: Prostate cancer metastatic
     Route: 065
  2. ZYTIGA [Suspect]
     Active Substance: ABIRATERONE ACETATE
     Route: 048
     Dates: start: 201901
  3. DOCETAXEL [Suspect]
     Active Substance: DOCETAXEL
     Route: 065
     Dates: start: 202004
  4. TRIPTORELIN [Suspect]
     Active Substance: TRIPTORELIN
     Route: 065

REACTIONS (3)
  - Hypertransaminasaemia [Unknown]
  - Prostate cancer metastatic [Unknown]
  - Diarrhoea [Unknown]
